FAERS Safety Report 11897157 (Version 3)
Quarter: 2016Q1

REPORT INFORMATION
  Report Type: Spontaneous
  Country: EC (occurrence: EC)
  Receive Date: 20160107
  Receipt Date: 20160126
  Transmission Date: 20160526
  Serious: Yes (Death)
  Sender: FDA-Public Use
  Company Number: EC-ROCHE-1690294

PATIENT
  Age: 69 Year
  Sex: Male

DRUGS (6)
  1. FLUDARABINE [Concomitant]
     Active Substance: FLUDARABINE PHOSPHATE
     Indication: NON-HODGKIN^S LYMPHOMA
     Dosage: FOR 3 DAYS EVERY 21 DAYS
     Route: 042
     Dates: start: 20140818, end: 20141117
  2. MABTHERA [Suspect]
     Active Substance: RITUXIMAB
     Indication: NON-HODGKIN^S LYMPHOMA
     Route: 042
     Dates: start: 20140814, end: 20141117
  3. FILGRASTIM [Concomitant]
     Active Substance: FILGRASTIM
     Route: 042
     Dates: start: 20140817, end: 20141117
  4. MESNA. [Concomitant]
     Active Substance: MESNA
     Route: 042
     Dates: start: 201410, end: 201411
  5. PEGFILGRASTIM [Concomitant]
     Active Substance: PEGFILGRASTIM
     Route: 058
     Dates: start: 201412, end: 201508
  6. CYCLOPHOSPHAMIDE. [Concomitant]
     Active Substance: CYCLOPHOSPHAMIDE
     Indication: NON-HODGKIN^S LYMPHOMA
     Dosage: FOR 3 DAYS EVERY 21 DAYS
     Route: 042
     Dates: start: 20140814, end: 20141117

REACTIONS (1)
  - Progressive multifocal leukoencephalopathy [Fatal]

NARRATIVE: CASE EVENT DATE: 20151125
